FAERS Safety Report 10191603 (Version 2)
Quarter: 2014Q2

REPORT INFORMATION
  Report Type: Spontaneous
  Country: US (occurrence: US)
  Receive Date: 20140523
  Receipt Date: 20140523
  Transmission Date: 20141212
  Serious: Yes (Other)
  Sender: FDA-Public Use
  Company Number: US-RB-065966-14

PATIENT
  Age: 75 Year
  Sex: Male

DRUGS (3)
  1. MUCINEX DM [Suspect]
     Indication: COUGH
     Dosage: 2 TABLETS A DAY. PATIENT HAD TAKEN PRODUCT FOR APPROXIMATELY 2 WEEKS.
     Route: 048
     Dates: start: 20140430
  2. ASPIRIN [Concomitant]
     Indication: ARTHRITIS
  3. CARBIDILOL [Concomitant]
     Indication: HYPERTENSION

REACTIONS (2)
  - Hypertension [Not Recovered/Not Resolved]
  - Incorrect drug administration duration [Recovered/Resolved]
